FAERS Safety Report 6259877-X (Version None)
Quarter: 2009Q3

REPORT INFORMATION
  Report Type: 
  Country: None (occurrence: None)
  Receive Date: 20090706
  Receipt Date: 20090706
  Transmission Date: 20100115
  Serious: Yes (Life-Threatening)
  Sender: FDA-Public Use
  Company Number: None

PATIENT
  Sex: Female
  Weight: 42.3 kg

DRUGS (1)
  1. SUCCINYLCHOLINE 20MG/ML -200MG VIAL- HOSPIRA [Suspect]
     Indication: ENDOTRACHEAL INTUBATION
     Dosage: 25 MG ONCE IV
     Route: 042
     Dates: start: 20090317, end: 20090317

REACTIONS (3)
  - LARYNGEAL OEDEMA [None]
  - LIP SWELLING [None]
  - RASH [None]
